FAERS Safety Report 10672557 (Version 1)
Quarter: 2014Q4

REPORT INFORMATION
  Report Type: Spontaneous
  Country: US (occurrence: US)
  Receive Date: 20141223
  Receipt Date: 20141223
  Transmission Date: 20150529
  Serious: Yes (Hospitalization)
  Sender: FDA-Public Use
  Company Number: PHHY2014US163498

PATIENT
  Age: 16 Year
  Sex: Female

DRUGS (2)
  1. LIDOCAINE. [Suspect]
     Active Substance: LIDOCAINE
     Indication: PRODUCT USED FOR UNKNOWN INDICATION
     Dosage: 120 ML, UNK
     Route: 065
  2. IBUPROFEN. [Concomitant]
     Active Substance: IBUPROFEN
     Indication: PRODUCT USED FOR UNKNOWN INDICATION
     Route: 065

REACTIONS (9)
  - Toxic encephalopathy [Unknown]
  - Toxicity to various agents [Unknown]
  - Speech disorder [Unknown]
  - Metabolic acidosis [Unknown]
  - Neurotoxicity [Unknown]
  - Somnolence [Unknown]
  - Mucosal dryness [Unknown]
  - Seizure [Unknown]
  - Agitation [Unknown]
